FAERS Safety Report 22168827 (Version 6)
Quarter: 2023Q4

REPORT INFORMATION
  Report Type: Spontaneous
  Country: JP (occurrence: JP)
  Receive Date: 20230403
  Receipt Date: 20231211
  Transmission Date: 20240110
  Serious: Yes (Hospitalization, Other)
  Sender: FDA-Public Use
  Company Number: JP-BRISTOL-MYERS SQUIBB COMPANY-2022-123017

PATIENT
  Age: 79 Year
  Sex: Male

DRUGS (2)
  1. YERVOY [Suspect]
     Active Substance: IPILIMUMAB
     Indication: Non-small cell lung cancer recurrent
     Route: 041
  2. OPDIVO [Suspect]
     Active Substance: NIVOLUMAB
     Indication: Non-small cell lung cancer recurrent
     Route: 041

REACTIONS (14)
  - Pyrexia [Recovered/Resolved]
  - Malaise [Unknown]
  - Urinary tract infection [Unknown]
  - Immune-mediated hypophysitis [Recovered/Resolved]
  - Vomiting [Unknown]
  - Nausea [Unknown]
  - C-reactive protein increased [Unknown]
  - Blood pressure decreased [Recovering/Resolving]
  - Sepsis [Unknown]
  - Secondary adrenocortical insufficiency [Unknown]
  - Cortisol decreased [Unknown]
  - Blood corticotrophin abnormal [Unknown]
  - Blood creatinine increased [Unknown]
  - Hypopituitarism [Recovering/Resolving]
